FAERS Safety Report 19423924 (Version 1)
Quarter: 2021Q2

REPORT INFORMATION
  Report Type: Other
  Country: US (occurrence: US)
  Receive Date: 20210616
  Receipt Date: 20210616
  Transmission Date: 20210717
  Serious: No
  Sender: FDA-Public Use
  Company Number: US-COVIS PHARMA GMBH-AMAG202100373

PATIENT
  Age: 34 Year
  Sex: Female
  Weight: 74 kg

DRUGS (1)
  1. MAKENA [Suspect]
     Active Substance: HYDROXYPROGESTERONE CAPROATE
     Indication: PREMATURE DELIVERY
     Route: 058
     Dates: start: 20210122

REACTIONS (5)
  - Injection site bruising [Unknown]
  - Injection site pain [Recovered/Resolved]
  - Product administration error [Unknown]
  - Injection site pruritus [Unknown]
  - Skin haemorrhage [Unknown]

NARRATIVE: CASE EVENT DATE: 20210204
